FAERS Safety Report 19554905 (Version 2)
Quarter: 2025Q1

REPORT INFORMATION
  Report Type: Spontaneous
  Country: CA (occurrence: CA)
  Receive Date: 20210716
  Receipt Date: 20250103
  Transmission Date: 20250409
  Serious: Yes (Hospitalization, Other)
  Sender: CELLTRION
  Company Number: CA-CELLTRION INC.-2021CA009362

PATIENT

DRUGS (2)
  1. RITUXIMAB [Suspect]
     Active Substance: RITUXIMAB
     Indication: Granulomatosis with polyangiitis
     Dosage: 650 MILLIGRAM 1EVERY 1 WEEK
     Route: 042
  2. RITUXIMAB [Suspect]
     Active Substance: RITUXIMAB
     Indication: Granulomatosis with polyangiitis
     Route: 042

REACTIONS (7)
  - Condition aggravated [Unknown]
  - Oxygen saturation decreased [Unknown]
  - Pallor [Unknown]
  - Pancreatitis [Unknown]
  - Pseudocyst [Unknown]
  - Heart rate increased [Unknown]
  - Off label use [Unknown]
